FAERS Safety Report 15693476 (Version 1)
Quarter: 2018Q4

REPORT INFORMATION
  Report Type: Spontaneous
  Country: US (occurrence: US)
  Receive Date: 20181206
  Receipt Date: 20181206
  Transmission Date: 20190205
  Serious: No
  Sender: FDA-Public Use
  Company Number: US-BRISTOL-MYERS SQUIBB COMPANY-BMS-2018-114909

PATIENT
  Sex: Female

DRUGS (2)
  1. SPRYCEL [Suspect]
     Active Substance: DASATINIB
     Indication: PRODUCT USED FOR UNKNOWN INDICATION
     Dosage: 2 TAB, EVERY SUNDAY UNK
     Route: 048
  2. SPRYCEL [Suspect]
     Active Substance: DASATINIB
     Indication: CHRONIC MYELOID LEUKAEMIA
     Dosage: 1 TAB, TAKE ONE TABLET DAILYUNK
     Route: 048
     Dates: start: 201811

REACTIONS (5)
  - Pain [Recovered/Resolved]
  - Vomiting [Unknown]
  - Nausea [Unknown]
  - Oropharyngeal pain [Recovered/Resolved]
  - Overdose [Unknown]
